FAERS Safety Report 6424383-6 (Version None)
Quarter: 2009Q4

REPORT INFORMATION
  Report Type: 
  Country: None (occurrence: None)
  Receive Date: 20091030
  Receipt Date: 20091030
  Transmission Date: 20100525
  Serious: No
  Sender: FDA-Public Use
  Company Number: None

PATIENT
  Age: 24 Year
  Sex: Female
  Weight: 66.7 kg

DRUGS (2)
  1. IOPROMIDE [Suspect]
     Indication: COMPUTERISED TOMOGRAM HEAD
     Dosage: 50 ML OTHER IV
     Route: 042
     Dates: start: 20090311, end: 20090311
  2. IOPROMIDE [Suspect]
     Indication: PAIN
     Dosage: 50 ML OTHER IV
     Route: 042
     Dates: start: 20090311, end: 20090311

REACTIONS (4)
  - DYSPHONIA [None]
  - LARYNGOSPASM [None]
  - OBSTRUCTIVE AIRWAYS DISORDER [None]
  - SENSATION OF FOREIGN BODY [None]
